FAERS Safety Report 11870815 (Version 1)
Quarter: 2015Q4

REPORT INFORMATION
  Report Type: Spontaneous
  Country: US (occurrence: None)
  Receive Date: 20151224
  Receipt Date: 20151224
  Transmission Date: 20160305
  Serious: Yes (Death, Hospitalization)
  Sender: FDA-Public Use
  Company Number: None

PATIENT
  Age: 37 Year
  Sex: Female
  Weight: 77.11 kg

DRUGS (3)
  1. FLUOXETINE [Concomitant]
     Active Substance: FLUOXETINE HYDROCHLORIDE
  2. SUBOXONE [Suspect]
     Active Substance: BUPRENORPHINE HYDROCHLORIDE\NALOXONE HYDROCHLORIDE
     Indication: DRUG DEPENDENCE
     Dosage: 1 PILL AT BEDTIME
     Route: 060
     Dates: start: 20151008, end: 20151010
  3. SUBOXONE [Suspect]
     Active Substance: BUPRENORPHINE HYDROCHLORIDE\NALOXONE HYDROCHLORIDE
     Indication: DRUG DEPENDENCE
     Dosage: 1 PILL TWICE DAILY
     Route: 060
     Dates: start: 20151008, end: 20151010

REACTIONS (8)
  - Exposure during pregnancy [None]
  - Abdominal distension [None]
  - Back pain [None]
  - Cardiac arrest [None]
  - Foetal death [None]
  - Dyspnoea [None]
  - Overdose [None]
  - Peripheral swelling [None]

NARRATIVE: CASE EVENT DATE: 20151010
